FAERS Safety Report 15247849 (Version 1)
Quarter: 2018Q3

REPORT INFORMATION
  Report Type: Spontaneous
  Country: US (occurrence: US)
  Receive Date: 20180713
  Receipt Date: 20180713
  Transmission Date: 20181010
  Serious: Yes (Other)
  Sender: FDA-Public Use
  Company Number: None

PATIENT
  Age: 77 Year
  Sex: Male
  Weight: 81 kg

DRUGS (11)
  1. TAMSULOSIN [Concomitant]
     Active Substance: TAMSULOSIN
  2. ONDANSETRON [Concomitant]
     Active Substance: ONDANSETRON
  3. METOLAZONE. [Concomitant]
     Active Substance: METOLAZONE
  4. TORSEMIDE. [Concomitant]
     Active Substance: TORSEMIDE
  5. CYCLOPHOSPHAMIDE. [Suspect]
     Active Substance: CYCLOPHOSPHAMIDE
     Dosage: ?          OTHER FREQUENCY:ONCE WEEKLY;?
     Route: 048
     Dates: start: 20180508
  6. METOPROLOL. [Concomitant]
     Active Substance: METOPROLOL
  7. OMEPRAZOLE. [Concomitant]
     Active Substance: OMEPRAZOLE
  8. FERROUS SULFATE. [Concomitant]
     Active Substance: FERROUS SULFATE
  9. ATORVASTATIN [Concomitant]
     Active Substance: ATORVASTATIN
  10. VITAMIN D [Concomitant]
     Active Substance: CHOLECALCIFEROL
  11. XALATAN [Concomitant]
     Active Substance: LATANOPROST

REACTIONS (1)
  - Disease progression [None]
